FAERS Safety Report 7480353-0 (Version None)
Quarter: 2011Q2

REPORT INFORMATION
  Report Type: 
  Country: None (occurrence: None)
  Receive Date: 20110512
  Receipt Date: 20110512
  Transmission Date: 20111010
  Serious: Yes (Hospitalization)
  Sender: FDA-Public Use
  Company Number: None

PATIENT
  Age: 69 Year
  Sex: Male
  Weight: 88.3 kg

DRUGS (4)
  1. CEFAZOLIN [Suspect]
     Indication: SURGERY
     Dosage: 2000 MG ONCE IV
     Route: 042
     Dates: start: 20110203, end: 20110203
  2. CEFAZOLIN [Suspect]
     Indication: INFECTION PROPHYLAXIS
     Dosage: 2000 MG ONCE IV
     Route: 042
     Dates: start: 20110203, end: 20110203
  3. ROCURONIUM BROMIDE [Suspect]
     Indication: NEUROMUSCULAR BLOCKING THERAPY
     Dosage: PRN IV
     Route: 042
     Dates: start: 20110203, end: 20110203
  4. ROCURONIUM BROMIDE [Suspect]
     Indication: SURGERY
     Dosage: PRN IV
     Route: 042
     Dates: start: 20110203, end: 20110203

REACTIONS (5)
  - HYPOTENSION [None]
  - RESPIRATORY DEPRESSION [None]
  - URTICARIA [None]
  - ANGIOEDEMA [None]
  - PRURITUS [None]
